FAERS Safety Report 5559416-2 (Version None)
Quarter: 2007Q4

REPORT INFORMATION
  Report Type: 
  Country: None (occurrence: None)
  Receive Date: 20071214
  Receipt Date: 20070927
  Transmission Date: 20080405
  Serious: No
  Sender: FDA-Public Use
  Company Number: US-ABBOTT-07P-163-0419113-00

PATIENT
  Sex: Female
  Weight: 90.9 kg

DRUGS (14)
  1. HUMIRA [Suspect]
     Indication: RHEUMATOID ARTHRITIS
     Route: 058
     Dates: start: 20070913
  2. FUROSEMIDE [Concomitant]
     Indication: SWELLING
     Route: 048
  3. METOPROLOL [Concomitant]
     Indication: HYPERTENSION
     Route: 048
  4. VALSARTAN [Concomitant]
     Indication: HYPERTENSION
     Route: 048
  5. HYDROXYCHLOR [Concomitant]
     Indication: HYPERTENSION
     Route: 048
  6. LEVOTHYROXINE SODIUM [Concomitant]
     Indication: THYROID DISORDER
     Route: 048
  7. INEGY [Concomitant]
     Indication: BLOOD CHOLESTEROL
     Route: 048
  8. WARFARIN SODIUM [Concomitant]
     Indication: ANTICOAGULANT THERAPY
     Route: 048
  9. METHOTREXATE [Concomitant]
     Indication: RHEUMATOID ARTHRITIS
     Route: 048
  10. LOFIBRA [Concomitant]
     Indication: BLOOD CHOLESTEROL
     Route: 048
  11. PANTOPRAZOLE SODIUM [Concomitant]
     Indication: GASTROOESOPHAGEAL REFLUX DISEASE
     Route: 048
  12. FOLIC ACID [Concomitant]
     Indication: VITAMIN SUPPLEMENTATION
     Route: 048
  13. MOMETASONE FUROATE [Concomitant]
     Indication: HYPERSENSITIVITY
     Route: 045
  14. ADVAIR 250/50MCG [Concomitant]
     Indication: HYPERSENSITIVITY
     Route: 055

REACTIONS (2)
  - ARTHRALGIA [None]
  - DRUG INEFFECTIVE [None]
